FAERS Safety Report 25035635 (Version 2)
Quarter: 2025Q3

REPORT INFORMATION
  Report Type: Spontaneous
  Country: EU (occurrence: EU)
  Receive Date: 20250304
  Receipt Date: 20250803
  Transmission Date: 20251020
  Serious: Yes (Other)
  Sender: ALEXION PHARMACEUTICALS
  Company Number: AU-SUN PHARMACEUTICAL INDUSTRIES LTD-2025R1-490123

PATIENT
  Age: 66 Year
  Sex: Female
  Weight: 80.4 kg

DRUGS (79)
  1. FASLODEX [Suspect]
     Active Substance: FULVESTRANT
     Indication: Breast cancer metastatic
  2. FASLODEX [Suspect]
     Active Substance: FULVESTRANT
     Dates: start: 20171116, end: 20191001
  3. CAPECITABINE [Suspect]
     Active Substance: CAPECITABINE
     Indication: Product used for unknown indication
     Dates: start: 20191002, end: 20210224
  4. DOXORUBICIN HYDROCHLORIDE [Suspect]
     Active Substance: DOXORUBICIN HYDROCHLORIDE
     Indication: Product used for unknown indication
     Dates: start: 20210608, end: 20210608
  5. DOXIL [Suspect]
     Active Substance: DOXORUBICIN HYDROCHLORIDE
     Indication: Breast cancer metastatic
     Dates: start: 20210608, end: 20210608
  6. HERCEPTIN [Suspect]
     Active Substance: TRASTUZUMAB
     Indication: Breast cancer metastatic
     Dates: start: 20170609, end: 20170630
  7. HERCEPTIN [Suspect]
     Active Substance: TRASTUZUMAB
     Dates: start: 20170410, end: 20170427
  8. HERCEPTIN [Suspect]
     Active Substance: TRASTUZUMAB
     Dates: start: 20170810, end: 20190213
  9. HERCEPTIN [Suspect]
     Active Substance: TRASTUZUMAB
     Dates: start: 20210317, end: 20210428
  10. HERCEPTIN [Suspect]
     Active Substance: TRASTUZUMAB
     Dates: start: 20170519, end: 20170519
  11. HERCEPTIN [Suspect]
     Active Substance: TRASTUZUMAB
     Dates: start: 20170720, end: 20170720
  12. HERCEPTIN [Suspect]
     Active Substance: TRASTUZUMAB
     Dates: start: 20200422, end: 20200615
  13. HERCEPTIN [Suspect]
     Active Substance: TRASTUZUMAB
     Dates: start: 20170224, end: 20170224
  14. HERCEPTIN [Suspect]
     Active Substance: TRASTUZUMAB
     Dates: start: 20201230, end: 20210210
  15. HERCEPTIN [Suspect]
     Active Substance: TRASTUZUMAB
     Route: 065
     Dates: start: 20170609, end: 20170630
  16. HERCEPTIN [Suspect]
     Active Substance: TRASTUZUMAB
     Route: 065
     Dates: start: 20170810, end: 20190213
  17. HERCEPTIN [Suspect]
     Active Substance: TRASTUZUMAB
     Route: 065
     Dates: start: 20200422, end: 20200615
  18. HERCEPTIN [Suspect]
     Active Substance: TRASTUZUMAB
     Route: 065
     Dates: start: 20201230, end: 20210210
  19. KADCYLA [Suspect]
     Active Substance: ADO-TRASTUZUMAB EMTANSINE
     Indication: Breast cancer metastatic
     Dates: start: 20190306, end: 20190909
  20. KADCYLA [Suspect]
     Active Substance: ADO-TRASTUZUMAB EMTANSINE
     Route: 065
     Dates: start: 20190306, end: 20190909
  21. NAVELBINE [Suspect]
     Active Substance: VINORELBINE TARTRATE
     Indication: Breast cancer metastatic
  22. NAVELBINE [Suspect]
     Active Substance: VINORELBINE TARTRATE
     Dates: start: 20200422, end: 20200722
  23. PERJETA [Suspect]
     Active Substance: PERTUZUMAB
     Indication: Breast cancer metastatic
     Dates: start: 20210317, end: 20210428
  24. PERJETA [Suspect]
     Active Substance: PERTUZUMAB
     Dates: start: 20200422, end: 20200615
  25. PERJETA [Suspect]
     Active Substance: PERTUZUMAB
  26. TAXOTERE [Suspect]
     Active Substance: DOCETAXEL
     Indication: Breast cancer metastatic
     Dates: start: 20170609, end: 20170630
  27. TAXOTERE [Suspect]
     Active Substance: DOCETAXEL
     Dates: start: 20170609, end: 20170630
  28. TAXOTERE [Suspect]
     Active Substance: DOCETAXEL
     Dates: start: 20170410, end: 20170427
  29. TAXOTERE [Suspect]
     Active Substance: DOCETAXEL
     Dates: start: 20210317, end: 20210428
  30. TAXOTERE [Suspect]
     Active Substance: DOCETAXEL
     Dates: start: 20210317, end: 20210428
  31. TAXOTERE [Suspect]
     Active Substance: DOCETAXEL
     Dates: start: 20170519, end: 20170519
  32. TAXOTERE [Suspect]
     Active Substance: DOCETAXEL
  33. TAXOTERE [Suspect]
     Active Substance: DOCETAXEL
  34. TAXOTERE [Suspect]
     Active Substance: DOCETAXEL
     Route: 065
     Dates: start: 20170609, end: 20170630
  35. TAXOTERE [Suspect]
     Active Substance: DOCETAXEL
     Route: 065
     Dates: start: 20170410, end: 20170427
  36. TAXOTERE [Suspect]
     Active Substance: DOCETAXEL
     Route: 065
     Dates: start: 20210317, end: 20210428
  37. TAXOTERE [Suspect]
     Active Substance: DOCETAXEL
     Route: 065
     Dates: start: 20210317, end: 20210428
  38. TAXOTERE [Suspect]
     Active Substance: DOCETAXEL
     Route: 065
     Dates: start: 20170519, end: 20170519
  39. TAXOTERE [Suspect]
     Active Substance: DOCETAXEL
     Route: 065
  40. TAXOTERE [Suspect]
     Active Substance: DOCETAXEL
  41. BLEOMYCIN SULFATE [Suspect]
     Active Substance: BLEOMYCIN SULFATE
     Indication: Breast cancer metastatic
  42. BLEOMYCIN SULFATE [Suspect]
     Active Substance: BLEOMYCIN SULFATE
     Dates: start: 20210105, end: 20210105
  43. BLEOMYCIN SULFATE [Suspect]
     Active Substance: BLEOMYCIN SULFATE
     Dates: start: 20200519, end: 20200519
  44. DENOSUMAB [Suspect]
     Active Substance: DENOSUMAB
     Indication: Breast cancer metastatic
     Dates: start: 20201230, end: 20210210
  45. TRASTUZUMAB [Suspect]
     Active Substance: TRASTUZUMAB
     Indication: Breast cancer metastatic
     Dates: start: 20200814, end: 20201015
  46. PERTUZUMAB [Suspect]
     Active Substance: PERTUZUMAB
     Indication: Product used for unknown indication
     Route: 065
     Dates: start: 20170214, end: 20210428
  47. TUCATINIB [Suspect]
     Active Substance: TUCATINIB
     Indication: Breast cancer metastatic
     Dates: start: 20201230, end: 20210210
  48. TYKERB [Suspect]
     Active Substance: LAPATINIB DITOSYLATE
     Indication: Breast cancer metastatic
     Dates: start: 20191002, end: 20200107
  49. TYKERB [Suspect]
     Active Substance: LAPATINIB DITOSYLATE
     Dates: start: 20200108, end: 20200421
  50. XELODA [Suspect]
     Active Substance: CAPECITABINE
     Indication: Breast cancer metastatic
     Dates: start: 20191002, end: 20200107
  51. XELODA [Suspect]
     Active Substance: CAPECITABINE
  52. XELODA [Suspect]
     Active Substance: CAPECITABINE
     Dates: start: 20210210, end: 20210224
  53. XELODA [Suspect]
     Active Substance: CAPECITABINE
     Dates: start: 20201230, end: 20210203
  54. BUTYLSCOPOLAMINE BROMIDE [Concomitant]
     Active Substance: BUTYLSCOPOLAMINE BROMIDE
     Indication: Gastrointestinal disorder
     Route: 065
     Dates: start: 20210618, end: 20210618
  55. POLYETHYLENE GLYCOL 3350\POTASSIUM CHLORIDE\SODIUM BICARBONATE\SODIUM [Concomitant]
     Active Substance: POLYETHYLENE GLYCOL 3350\POTASSIUM CHLORIDE\SODIUM BICARBONATE\SODIUM CHLORIDE
     Indication: Product used for unknown indication
     Route: 065
     Dates: start: 20210608, end: 20210616
  56. Paracodin [Concomitant]
     Indication: Cough
     Route: 065
     Dates: start: 20210608, end: 20210610
  57. Paracodin [Concomitant]
     Route: 065
     Dates: start: 20210428, end: 20210615
  58. ALPRAZOLAM [Concomitant]
     Active Substance: ALPRAZOLAM
     Indication: Restlessness
     Route: 065
     Dates: start: 20210613, end: 20210615
  59. BETAMETHASONE DIPROPIONATE [Concomitant]
     Active Substance: BETAMETHASONE DIPROPIONATE
     Indication: Eczema
  60. DROPERIDOL [Concomitant]
     Active Substance: DROPERIDOL
     Indication: Gastrointestinal disorder
     Route: 065
  61. DROPERIDOL [Concomitant]
     Active Substance: DROPERIDOL
     Indication: Restlessness
     Route: 065
     Dates: start: 20210612, end: 20210617
  62. DROPERIDOL [Concomitant]
     Active Substance: DROPERIDOL
     Route: 065
     Dates: start: 20210618, end: 20210623
  63. FENTANYL [Concomitant]
     Active Substance: FENTANYL
     Indication: Product used for unknown indication
  64. HYDROMORPHONE HYDROCHLORIDE [Concomitant]
     Active Substance: HYDROMORPHONE HYDROCHLORIDE
     Indication: Product used for unknown indication
     Route: 065
     Dates: start: 20210611, end: 20210615
  65. LACTULOSE [Concomitant]
     Active Substance: LACTULOSE
     Indication: Product used for unknown indication
     Route: 065
  66. LEVOTHYROXINE SODIUM [Concomitant]
     Active Substance: LEVOTHYROXINE SODIUM
     Indication: Product used for unknown indication
     Route: 065
     Dates: start: 20170303, end: 20210615
  67. LORAZEPAM [Concomitant]
     Active Substance: LORAZEPAM
     Indication: Restlessness
     Route: 065
     Dates: start: 20210611, end: 20210621
  68. LORAZEPAM [Concomitant]
     Active Substance: LORAZEPAM
     Route: 065
     Dates: start: 20210618, end: 20210623
  69. MORPHINE [Concomitant]
     Active Substance: MORPHINE
     Indication: Dyspnoea
     Route: 065
     Dates: start: 20210616, end: 20210623
  70. MORPHINE [Concomitant]
     Active Substance: MORPHINE
     Route: 065
     Dates: start: 20210521, end: 20210616
  71. ONDANSETRON [Concomitant]
     Active Substance: ONDANSETRON
     Indication: Gastrointestinal disorder
     Route: 065
     Dates: start: 20210608, end: 20210610
  72. ACETAMINOPHEN [Concomitant]
     Active Substance: ACETAMINOPHEN
     Indication: Product used for unknown indication
     Route: 065
     Dates: start: 20210622, end: 20210622
  73. PEGFILGRASTIM [Concomitant]
     Active Substance: PEGFILGRASTIM
     Indication: Product used for unknown indication
     Route: 065
     Dates: start: 20210610, end: 20210610
  74. PREGABALIN [Concomitant]
     Active Substance: PREGABALIN
     Indication: Product used for unknown indication
     Route: 065
     Dates: start: 20190821, end: 20210616
  75. VITAMIN C [Concomitant]
     Active Substance: ASCORBIC ACID
     Indication: Gastrointestinal disorder
     Route: 065
     Dates: start: 20210611, end: 20210614
  76. XGEVA [Concomitant]
     Active Substance: DENOSUMAB
     Indication: Product used for unknown indication
     Route: 065
     Dates: start: 20170202, end: 20210521
  77. ZOFRAN [Concomitant]
     Active Substance: ONDANSETRON HYDROCHLORIDE
     Indication: Product used for unknown indication
     Route: 065
     Dates: start: 20210608, end: 20210610
  78. ZOFRAN [Concomitant]
     Active Substance: ONDANSETRON HYDROCHLORIDE
     Route: 065
     Dates: start: 20210611, end: 20210612
  79. ZOFRAN [Concomitant]
     Active Substance: ONDANSETRON HYDROCHLORIDE
     Route: 065
     Dates: start: 20210612, end: 20210616

REACTIONS (14)
  - Back pain [Recovered/Resolved]
  - Brain oedema [Not Recovered/Not Resolved]
  - Candida infection [Not Recovered/Not Resolved]
  - C-reactive protein increased [Not Recovered/Not Resolved]
  - Fatigue [Recovered/Resolved]
  - Metastases to central nervous system [Not Recovered/Not Resolved]
  - Metastases to lymph nodes [Not Recovered/Not Resolved]
  - Nausea [Recovered/Resolved]
  - Pseudomonal sepsis [Recovered/Resolved]
  - Restlessness [Unknown]
  - Sepsis [Recovered/Resolved]
  - Streptococcal sepsis [Recovered/Resolved]
  - Vascular device infection [Recovered/Resolved]
  - Vomiting [Recovered/Resolved]

NARRATIVE: CASE EVENT DATE: 20200415
